FAERS Safety Report 24460753 (Version 1)
Quarter: 2024Q4

REPORT INFORMATION
  Report Type: Report from Study
  Country: TR (occurrence: TR)
  Receive Date: 20241018
  Receipt Date: 20241018
  Transmission Date: 20250114
  Serious: No
  Sender: ROCHE
  Company Number: TR-ROCHE-3548383

PATIENT
  Age: 30 Year
  Sex: Female

DRUGS (2)
  1. RITUXIMAB [Suspect]
     Active Substance: RITUXIMAB
     Indication: Pemphigus
     Dosage: TWO DOSES
     Route: 042
  2. TOZINAMERAN [Concomitant]
     Active Substance: TOZINAMERAN
     Dosage: TWO DOSES

REACTIONS (1)
  - COVID-19 [Unknown]
